FAERS Safety Report 18327352 (Version 3)
Quarter: 2021Q1

REPORT INFORMATION
  Report Type: Spontaneous
  Country: US (occurrence: US)
  Receive Date: 20200930
  Receipt Date: 20210211
  Transmission Date: 20210419
  Serious: Yes (Other)
  Sender: FDA-Public Use
  Company Number: US-SA-2020SA267903

PATIENT
  Age: 72 Year
  Sex: Female

DRUGS (1)
  1. ZANTAC [Suspect]
     Active Substance: RANITIDINE HYDROCHLORIDE
     Indication: DYSPEPSIA
     Dosage: 25 MG, QD
     Dates: start: 198701, end: 199301

REACTIONS (4)
  - Breast cancer [Unknown]
  - Pharyngeal disorder [Unknown]
  - Skin cancer [Not Recovered/Not Resolved]
  - Nasal disorder [Unknown]

NARRATIVE: CASE EVENT DATE: 20140101
